FAERS Safety Report 4776029-0 (Version None)
Quarter: 2005Q3

REPORT INFORMATION
  Report Type: 
  Country: None (occurrence: None)
  Receive Date: 20050922
  Receipt Date: 20050907
  Transmission Date: 20060218
  Serious: Yes (Hospitalization)
  Sender: FDA-Public Use
  Company Number: DEWYE958407SEP05

PATIENT
  Sex: Female

DRUGS (15)
  1. ENBREL [Suspect]
     Indication: RHEUMATOID ARTHRITIS
     Dosage: UNKNOWN
     Route: 058
  2. HALOPERIDOL [Concomitant]
  3. DURAGESIC-100 [Concomitant]
  4. HYDROCHLOROTHIAZIDE [Concomitant]
  5. IDEOS [Concomitant]
  6. ACTRAPHANE HM [Concomitant]
  7. LOSARTAN POTASSIUM [Concomitant]
  8. PANTOZOL [Concomitant]
  9. PREDNISOLONE ACETATE [Concomitant]
  10. METOPROLOL SUCCINATE [Concomitant]
  11. LAXOBERON [Concomitant]
  12. COTRIM DS [Concomitant]
  13. BUSCOPAN [Concomitant]
  14. AMPHO MORONAL [Concomitant]
  15. IBUPROFEN [Concomitant]

REACTIONS (1)
  - RENAL COLIC [None]
